FAERS Safety Report 21364728 (Version 1)
Quarter: 2022Q3

REPORT INFORMATION
  Report Type: Spontaneous
  Country: DE (occurrence: DE)
  Receive Date: 20220922
  Receipt Date: 20220922
  Transmission Date: 20221027
  Serious: Yes (Hospitalization)
  Sender: FDA-Public Use
  Company Number: DE-NOVARTISPH-NVSC2022DE210282

PATIENT
  Age: 73 Year
  Sex: Male
  Weight: 97 kg

DRUGS (5)
  1. ASPIRIN [Suspect]
     Active Substance: ASPIRIN
     Indication: Product used for unknown indication
     Dosage: 100 MG, QD (0-1-0-0)
     Route: 048
  2. CANDESARTAN [Concomitant]
     Active Substance: CANDESARTAN
     Indication: Product used for unknown indication
     Dosage: 16 MG, BID (1-1-0-0)
     Route: 048
  3. TAMSULOSIN [Concomitant]
     Active Substance: TAMSULOSIN
     Indication: Product used for unknown indication
     Dosage: 0.4 MG, BID (1-1-0-0)
     Route: 048
  4. LERCANIDIPINE [Concomitant]
     Active Substance: LERCANIDIPINE
     Indication: Product used for unknown indication
     Dosage: UNK
     Route: 048
  5. BISOPROLOL [Concomitant]
     Active Substance: BISOPROLOL
     Indication: Product used for unknown indication
     Dosage: 2.5 MG, BID (1-1-0-0)
     Route: 048

REACTIONS (9)
  - Abdominal pain upper [Unknown]
  - Upper gastrointestinal haemorrhage [Unknown]
  - Decreased appetite [Unknown]
  - Duodenal ulcer [Unknown]
  - Abdominal pain upper [Unknown]
  - Haematochezia [Unknown]
  - Dyspnoea exertional [Unknown]
  - Faeces discoloured [Unknown]
  - Dizziness [Unknown]
